FAERS Safety Report 21139139 (Version 2)
Quarter: 2022Q3

REPORT INFORMATION
  Report Type: Spontaneous
  Country: US (occurrence: None)
  Receive Date: 20220727
  Receipt Date: 20220909
  Transmission Date: 20221027
  Serious: No
  Sender: FDA-Public Use
  Company Number: 2022A240349

PATIENT
  Sex: Male
  Weight: 84.8 kg

DRUGS (2)
  1. BYDUREON BCISE [Suspect]
     Active Substance: EXENATIDE
     Indication: Type 2 diabetes mellitus
     Route: 058
  2. BYDUREON [Suspect]
     Active Substance: EXENATIDE
     Indication: Diabetes mellitus
     Route: 058

REACTIONS (4)
  - Hypoacusis [Unknown]
  - Wrong technique in device usage process [Unknown]
  - Incorrect dose administered by device [Unknown]
  - Device leakage [Unknown]
